FAERS Safety Report 23599389 (Version 1)
Quarter: 2024Q1

REPORT INFORMATION
  Report Type: Spontaneous
  Country: US (occurrence: US)
  Receive Date: 20240306
  Receipt Date: 20240306
  Transmission Date: 20240410
  Serious: No
  Sender: FDA-Public Use
  Company Number: US-SA-2024SA063871

PATIENT
  Age: 35 Year
  Sex: Female

DRUGS (2)
  1. ZANTAC 75 [Suspect]
     Active Substance: RANITIDINE HYDROCHLORIDE
     Indication: Abnormal uterine bleeding
     Dosage: 150 MG, BID
     Route: 048
  2. LORATADINE [Suspect]
     Active Substance: LORATADINE
     Indication: Abnormal uterine bleeding
     Dosage: 10 MG, BID
     Route: 048

REACTIONS (2)
  - Abnormal uterine bleeding [Recovered/Resolved]
  - Rebound effect [Recovered/Resolved]
